FAERS Safety Report 6644292-7 (Version None)
Quarter: 2010Q1

REPORT INFORMATION
  Report Type: 
  Country: None (occurrence: None)
  Receive Date: 20100322
  Receipt Date: 20100318
  Transmission Date: 20100710
  Serious: Yes (Other)
  Sender: FDA-Public Use
  Company Number: DE-JNJCH-2010006857

PATIENT
  Sex: Female

DRUGS (1)
  1. REGAINE 2% [Suspect]
     Indication: ALOPECIA
     Dosage: TEXT:UNKNOWN
     Route: 061

REACTIONS (2)
  - PLEURISY [None]
  - PULMONARY CONGESTION [None]
